FAERS Safety Report 7598181-4 (Version None)
Quarter: 2011Q3

REPORT INFORMATION
  Report Type: 
  Country: None (occurrence: None)
  Receive Date: 20110708
  Receipt Date: 20110629
  Transmission Date: 20111222
  Serious: Yes (Life-Threatening, Hospitalization)
  Sender: FDA-Public Use
  Company Number: JP-CELGENEUS-087-21880-11043151

PATIENT
  Sex: Male

DRUGS (28)
  1. DEXAMETHASONE [Suspect]
     Dosage: 20 MILLIGRAM
     Route: 048
     Dates: start: 20110105, end: 20110108
  2. DEXAMETHASONE [Suspect]
     Dosage: 20 MILLIGRAM
     Route: 048
     Dates: start: 20110324, end: 20110326
  3. OMEPRAZON [Concomitant]
     Indication: PROPHYLAXIS
     Dosage: 20 MILLIGRAM
     Route: 048
     Dates: start: 20081127, end: 20101219
  4. MAGNESIUM SULFATE [Concomitant]
     Indication: PROPHYLAXIS
     Dosage: 500 MILLIGRAM
     Route: 048
     Dates: start: 20071212, end: 20101212
  5. LEVOFLOXACIN [Concomitant]
     Indication: PROPHYLAXIS
     Dosage: 500 MILLIGRAM
     Route: 048
     Dates: start: 20110220, end: 20110223
  6. KAYTWO N [Concomitant]
     Indication: PROPHYLAXIS
     Dosage: 10 MILLIGRAM
     Route: 041
     Dates: start: 20110111, end: 20110111
  7. REVLIMID [Suspect]
     Dosage: 25 MILLIGRAM
     Route: 048
     Dates: start: 20101228, end: 20110111
  8. VALTREX [Concomitant]
     Indication: PROPHYLAXIS
     Dosage: 500 MILLIGRAM
     Route: 048
     Dates: start: 20100628, end: 20110326
  9. ADONA [Concomitant]
     Indication: PROPHYLAXIS
     Dosage: 50 MILLIGRAM
     Route: 041
     Dates: start: 20110111, end: 20110225
  10. NITRAZEPAM [Concomitant]
     Indication: PROPHYLAXIS
     Dosage: 10 MILLIGRAM
     Route: 041
     Dates: start: 20110224, end: 20110224
  11. METHYCOBAL [Concomitant]
     Dosage: 1.5 MILLIGRAM
     Route: 048
     Dates: start: 20090302, end: 20110326
  12. HUMULIN R [Concomitant]
     Indication: PROPHYLAXIS
     Route: 041
     Dates: start: 20110214, end: 20110216
  13. REVLIMID [Suspect]
     Indication: MULTIPLE MYELOMA
     Dosage: 15 MILLIGRAM
     Route: 048
     Dates: start: 20101123, end: 20101213
  14. REVLIMID [Suspect]
     Dosage: 25 MILLIGRAM
     Route: 048
     Dates: start: 20110324, end: 20110326
  15. SEFMAZON [Concomitant]
     Indication: PROPHYLAXIS
     Dosage: 2 BAG
     Route: 041
     Dates: start: 20110214, end: 20110216
  16. DEXAMETHASONE [Suspect]
     Dosage: 20 MILLIGRAM
     Route: 048
     Dates: start: 20101228, end: 20101231
  17. ZOMETA [Concomitant]
     Indication: PROPHYLAXIS
     Dosage: 4 MILLIGRAM
     Route: 041
     Dates: start: 20110224, end: 20110314
  18. MIGLITOL [Concomitant]
     Indication: PROPHYLAXIS
     Dosage: 150 MILLIGRAM
     Route: 048
     Dates: start: 20100906, end: 20110201
  19. AMARYL [Concomitant]
     Indication: PROPHYLAXIS
     Dosage: .5 MILLIGRAM
     Route: 048
     Dates: start: 20101213, end: 20110201
  20. MUCOSTA [Concomitant]
     Indication: PROPHYLAXIS
     Dosage: 300 MILLIGRAM
     Route: 048
     Dates: start: 20110215, end: 20110221
  21. DEXAMETHASONE [Suspect]
     Indication: MULTIPLE MYELOMA
     Dosage: 20 MILLIGRAM
     Route: 048
     Dates: start: 20101123, end: 20101212
  22. SLOW-K [Concomitant]
     Indication: PROPHYLAXIS
     Dosage: 1.2 GRAM
     Route: 048
     Dates: start: 20060516, end: 20110326
  23. LOXONIN [Concomitant]
     Indication: PROPHYLAXIS
     Dosage: 180 MILLIGRAM
     Route: 048
     Dates: start: 20110215, end: 20110221
  24. CEFTRIAXONE [Concomitant]
     Indication: PROPHYLAXIS
     Dosage: 2 GRAM
     Route: 041
     Dates: start: 20110217, end: 20110219
  25. PENTAZOCINE LACTATE [Concomitant]
     Indication: PROPHYLAXIS
     Dosage: 15 MILLIGRAM
     Route: 041
     Dates: start: 20110203, end: 20110224
  26. AMLODIPINE [Concomitant]
     Indication: HYPERTENSION
     Dosage: 5 MILLIGRAM
     Route: 048
     Dates: start: 20080402, end: 20110116
  27. DIOVAN [Concomitant]
     Indication: HYPERTENSION
     Dosage: 40 MILLIGRAM
     Route: 048
     Dates: start: 20050801, end: 20110116
  28. MAGNESIUM SULFATE [Concomitant]
     Dosage: 1.5 GRAM
     Route: 048
     Dates: start: 20110205, end: 20110326

REACTIONS (8)
  - CHOLELITHIASIS [None]
  - DISSEMINATED INTRAVASCULAR COAGULATION [None]
  - NEUTROPENIA [None]
  - NEUROPATHY PERIPHERAL [None]
  - CHOLECYSTITIS [None]
  - DUODENAL ULCER [None]
  - PALPITATIONS [None]
  - HYPOALBUMINAEMIA [None]
